FAERS Safety Report 22108538 (Version 1)
Quarter: 2023Q1

REPORT INFORMATION
  Report Type: Spontaneous
  Country: JP (occurrence: JP)
  Receive Date: 20230317
  Receipt Date: 20230317
  Transmission Date: 20230418
  Serious: Yes (Life-Threatening, Other)
  Sender: FDA-Public Use
  Company Number: JP-ASTELLAS-2023JP003255

PATIENT
  Age: 12 Year
  Sex: Male

DRUGS (8)
  1. PROGRAF [Suspect]
     Active Substance: TACROLIMUS
     Indication: Prophylaxis against graft versus host disease
     Dosage: UNK UNK, UNKNOWN FREQ.
     Route: 065
  2. INOTUZUMAB OZOGAMICIN [Suspect]
     Active Substance: INOTUZUMAB OZOGAMICIN
     Indication: B precursor type acute leukaemia
     Dosage: UNK UNK, UNKNOWN FREQ.
     Route: 065
  3. ETOPOSIDE [Concomitant]
     Active Substance: ETOPOSIDE
     Indication: Bone marrow conditioning regimen
     Dosage: 1.8 G/M2, UNKNOWN FREQ.
     Route: 065
  4. CYCLOPHOSPHAMIDE [Concomitant]
     Active Substance: CYCLOPHOSPHAMIDE
     Indication: Prophylaxis against graft versus host disease
     Dosage: UNK UNK, UNKNOWN FREQ.
     Route: 065
  5. MYCOPHENOLATE MOFETIL [Concomitant]
     Active Substance: MYCOPHENOLATE MOFETIL
     Indication: Prophylaxis against graft versus host disease
     Dosage: UNK UNK, UNKNOWN FREQ.
     Route: 065
  6. DEFIBROTIDE SODIUM [Concomitant]
     Active Substance: DEFIBROTIDE SODIUM
     Indication: Venoocclusive liver disease
     Dosage: UNK UNK, UNKNOWN FREQ.
     Route: 065
  7. METHYLPREDNISOLONE [Concomitant]
     Active Substance: METHYLPREDNISOLONE
     Indication: Hepatomegaly
     Dosage: UNK UNK, UNKNOWN FREQ.
     Route: 065
  8. METHYLPREDNISOLONE [Concomitant]
     Active Substance: METHYLPREDNISOLONE
     Indication: Ascites

REACTIONS (7)
  - Delirium [Recovering/Resolving]
  - Venoocclusive liver disease [Recovering/Resolving]
  - Hepatomegaly [Unknown]
  - Ascites [Unknown]
  - Ascites [Unknown]
  - Altered state of consciousness [Recovering/Resolving]
  - Seizure [Recovering/Resolving]
